FAERS Safety Report 5441249-9 (Version None)
Quarter: 2007Q3

REPORT INFORMATION
  Report Type: 
  Country: None (occurrence: None)
  Receive Date: 20070901
  Receipt Date: 20070821
  Transmission Date: 20080115
  Serious: Yes (Other)
  Sender: FDA-Public Use
  Company Number: US-PFIZER INC-2007071082

PATIENT
  Sex: Female
  Weight: 60 kg

DRUGS (3)
  1. LYRICA [Suspect]
     Indication: NEUROPATHY
  2. GLUCOPHAGE [Concomitant]
  3. ALL OTHER THERAPEUTIC PRODUCTS [Concomitant]

REACTIONS (7)
  - ARTHRALGIA [None]
  - ASTHENIA [None]
  - DYSSTASIA [None]
  - FALL [None]
  - FEELING DRUNK [None]
  - GAIT DISTURBANCE [None]
  - MUSCLE SPASMS [None]
